FAERS Safety Report 9205219 (Version 3)
Quarter: 2013Q3

REPORT INFORMATION
  Report Type: Report from Study
  Country: JP (occurrence: JP)
  Receive Date: 20130402
  Receipt Date: 20130722
  Transmission Date: 20140515
  Serious: Yes (Death)
  Sender: FDA-Public Use
  Company Number: JP-AMGEN-JPNCT2013022996

PATIENT
  Age: 85 Year
  Sex: Male
  Weight: 43 kg

DRUGS (9)
  1. ROMIPLATE [Suspect]
     Indication: IMMUNE THROMBOCYTOPENIC PURPURA
     Dosage: 1 MUG/KG, QD
     Route: 058
     Dates: start: 20121217, end: 20121217
  2. ROMIPLATE [Suspect]
     Dosage: 2 MUG/KG, QWK
     Route: 058
     Dates: start: 20121224, end: 20121231
  3. ROMIPLATE [Suspect]
     Dosage: 3 MUG/KG, QWK
     Route: 058
     Dates: start: 20130107, end: 20130114
  4. ROMIPLATE [Suspect]
     Dosage: 4 MUG/KG, QWK
     Route: 058
     Dates: start: 20130121, end: 20130128
  5. ROMIPLATE [Suspect]
     Dosage: 5 MUG/KG, QWK
     Route: 058
     Dates: start: 20130204, end: 20130211
  6. EPOETIN ALFA [Concomitant]
     Dosage: UNK
     Route: 065
  7. URIEF [Concomitant]
     Indication: BENIGN PROSTATIC HYPERPLASIA
     Dosage: UNK
     Route: 048
  8. MIYA BM [Concomitant]
     Indication: DIARRHOEA
     Dosage: UNK
     Route: 048
  9. DOPS [Concomitant]
     Indication: ORTHOSTATIC HYPOTENSION
     Dosage: UNK
     Route: 048

REACTIONS (1)
  - Hypotension [Fatal]
